FAERS Safety Report 5663613-5 (Version None)
Quarter: 2008Q1

REPORT INFORMATION
  Report Type: 
  Country: None (occurrence: None)
  Receive Date: 20080313
  Receipt Date: 20080303
  Transmission Date: 20080703
  Serious: Yes (Hospitalization)
  Sender: FDA-Public Use
  Company Number: FR-ABBOTT-08P-056-0440798-00

PATIENT
  Sex: Female

DRUGS (4)
  1. KALETRA [Suspect]
     Indication: HIV TEST POSITIVE
     Route: 048
     Dates: start: 20070319
  2. LEVETIRACETAM [Suspect]
     Indication: EPILEPSY
     Route: 048
     Dates: start: 20070205, end: 20070604
  3. RISPERIDONE [Suspect]
     Indication: DRUG USE FOR UNKNOWN INDICATION
     Route: 048
     Dates: end: 20070528
  4. EMTRICITABINE W/TENOFOVIR [Suspect]
     Indication: HIV TEST POSITIVE
     Route: 048
     Dates: start: 20070519

REACTIONS (5)
  - ABNORMAL BEHAVIOUR [None]
  - ENCEPHALOPATHY [None]
  - MEMORY IMPAIRMENT [None]
  - PERSONALITY DISORDER [None]
  - SPEECH DISORDER [None]
